FAERS Safety Report 20517742 (Version 2)
Quarter: 2022Q1

REPORT INFORMATION
  Report Type: Spontaneous
  Country: US (occurrence: US)
  Receive Date: 20220225
  Receipt Date: 20220307
  Transmission Date: 20220423
  Serious: Yes (Other)
  Sender: FDA-Public Use
  Company Number: US-PFIZER INC-202200269594

PATIENT
  Age: 64 Year
  Sex: Male

DRUGS (8)
  1. PROPOFOL [Suspect]
     Active Substance: PROPOFOL
     Indication: Sedation
     Dosage: UNK
  2. PROPOFOL [Suspect]
     Active Substance: PROPOFOL
     Dosage: 45 MCG/KG/MIN
  3. PROPOFOL [Suspect]
     Active Substance: PROPOFOL
     Dosage: 35 MCG/KG/MIN
  4. PROPOFOL [Suspect]
     Active Substance: PROPOFOL
     Dosage: 25MCG/KG/MIN
  5. FENTANYL [Concomitant]
     Active Substance: FENTANYL
     Indication: Sedation
     Dosage: HIGH DOSES
  6. CISATRACURIUM [Concomitant]
     Active Substance: CISATRACURIUM
     Indication: Sedation
     Dosage: UNK
  7. MIDAZOLAM [Concomitant]
     Active Substance: MIDAZOLAM
     Indication: Sedation
     Dosage: UNK
  8. DEXMEDETOMIDINE [Concomitant]
     Active Substance: DEXMEDETOMIDINE
     Indication: Sedation
     Dosage: UNK

REACTIONS (6)
  - Drug dependence [Recovered/Resolved]
  - Drug withdrawal syndrome [Recovered/Resolved]
  - Paradoxical drug reaction [Recovered/Resolved]
  - Tachypnoea [Recovered/Resolved]
  - Tachycardia [Recovered/Resolved]
  - Hypertension [Recovered/Resolved]
